FAERS Safety Report 4547215-X (Version None)
Quarter: 2005Q1

REPORT INFORMATION
  Report Type: 
  Country: None (occurrence: None)
  Receive Date: 20050107
  Receipt Date: 20050104
  Transmission Date: 20050727
  Serious: Yes (Death)
  Sender: FDA-Public Use
  Company Number: US-JNJFOC-20050100746

PATIENT
  Age: 43 Year
  Sex: Female
  Weight: 56.7 kg

DRUGS (3)
  1. TYLENOL [Suspect]
     Route: 049
  2. TYLENOL [Suspect]
     Indication: DRUG USE FOR UNKNOWN INDICATION
     Route: 049
  3. ASPIRIN [Suspect]
     Indication: DRUG USE FOR UNKNOWN INDICATION
     Route: 049

REACTIONS (3)
  - DEATH [None]
  - MULTIPLE DRUG OVERDOSE [None]
  - OVERDOSE [None]
